FAERS Safety Report 10553678 (Version 13)
Quarter: 2015Q3

REPORT INFORMATION
  Report Type: Report from Study
  Country: CA (occurrence: CA)
  Receive Date: 20141030
  Receipt Date: 20150803
  Transmission Date: 20151125
  Serious: Yes (Other)
  Sender: FDA-Public Use
  Company Number: PHHY2013CA110057

PATIENT
  Age: 77 Year
  Sex: Female

DRUGS (5)
  1. ZOMETA [Suspect]
     Active Substance: ZOLEDRONIC ACID
     Dosage: 4 MG, QMO
     Route: 042
  2. ZOMETA [Suspect]
     Active Substance: ZOLEDRONIC ACID
     Indication: LUNG NEOPLASM MALIGNANT
     Dosage: 4 MG, EVERY 4 WEEKS
     Route: 042
     Dates: start: 20130801
  3. ZOMETA [Suspect]
     Active Substance: ZOLEDRONIC ACID
     Dosage: 4 MG, QMO
     Route: 042
  4. DECADRON [Concomitant]
     Active Substance: DEXAMETHASONE
     Indication: PRODUCT USED FOR UNKNOWN INDICATION
     Route: 065
     Dates: start: 20131024
  5. ZOMETA [Suspect]
     Active Substance: ZOLEDRONIC ACID
     Dosage: 3 MG, QMO
     Route: 042

REACTIONS (33)
  - Peripheral swelling [Unknown]
  - Fatigue [Recovering/Resolving]
  - Arthralgia [Unknown]
  - Skin exfoliation [Recovering/Resolving]
  - Lacrimation increased [Unknown]
  - Blood glucose decreased [Unknown]
  - Off label use [Unknown]
  - Oedema peripheral [Unknown]
  - Creatinine renal clearance decreased [Unknown]
  - Liver disorder [Unknown]
  - Arthritis [Unknown]
  - Asthenia [Unknown]
  - Diarrhoea [Unknown]
  - Diabetes mellitus [Unknown]
  - Dizziness [Unknown]
  - Underweight [Recovering/Resolving]
  - Ovarian disorder [Unknown]
  - Bladder disorder [Unknown]
  - Pain in extremity [Unknown]
  - Blood creatinine increased [Unknown]
  - Metastases to liver [Unknown]
  - Joint swelling [Unknown]
  - Blood pressure diastolic decreased [Unknown]
  - Nausea [Recovering/Resolving]
  - Oedema [Unknown]
  - Urinary tract infection [Unknown]
  - Viral infection [Unknown]
  - Tongue cyst [Unknown]
  - Hypotension [Unknown]
  - Sensation of foreign body [Unknown]
  - Blood pressure systolic increased [Unknown]
  - Rash pruritic [Recovered/Resolved]
  - Weight increased [Unknown]

NARRATIVE: CASE EVENT DATE: 20130926
